FAERS Safety Report 19282130 (Version 1)
Quarter: 2021Q2

REPORT INFORMATION
  Report Type: Spontaneous
  Country: AR (occurrence: AR)
  Receive Date: 20210520
  Receipt Date: 20210520
  Transmission Date: 20210717
  Serious: Yes (Death, Other)
  Sender: FDA-Public Use
  Company Number: AR-PFIZER INC-2021526163

PATIENT
  Sex: Female
  Weight: 2.53 kg

DRUGS (1)
  1. PIROXICAM. [Suspect]
     Active Substance: PIROXICAM
     Dosage: UNK
     Route: 064

REACTIONS (6)
  - Anuria [Fatal]
  - Oligohydramnios [Unknown]
  - Renal failure neonatal [Unknown]
  - Neonatal respiratory distress syndrome [Unknown]
  - Maternal exposure during pregnancy [Fatal]
  - Renal tubular dysfunction [Unknown]
